FAERS Safety Report 7828935-8 (Version None)
Quarter: 2011Q4

REPORT INFORMATION
  Report Type: 
  Country: None (occurrence: None)
  Receive Date: 20111020
  Receipt Date: 20111007
  Transmission Date: 20120403
  Serious: Yes (Hospitalization, Other)
  Sender: FDA-Public Use
  Company Number: US-ELI_LILLY_AND_COMPANY-US201110002320

PATIENT
  Sex: Female

DRUGS (16)
  1. FORTEO [Suspect]
     Indication: OSTEOPOROSIS
     Dosage: 20 UG, QD
     Dates: start: 20101201
  2. CARDIZEM CD [Concomitant]
     Dosage: 360 MG, QD
  3. FUROSEMIDE [Concomitant]
     Dosage: 40 MG, BID
  4. FLEXERIL [Concomitant]
     Dosage: 2 DF, PRN
  5. DETROL LA [Concomitant]
     Dosage: 4 MG, QD
  6. MECLIZINE [Concomitant]
     Dosage: 25 MG, TID
  7. WARFARIN SODIUM [Concomitant]
     Dosage: 5 MG, QD
  8. PROZAC [Concomitant]
     Dosage: 400 MG, UNK
  9. ADVAIR DISKUS 100/50 [Concomitant]
  10. POTASSIUM CHLORIDE [Concomitant]
     Dosage: 20 MG, QD
  11. MAGNESIUM OXIDE [Concomitant]
     Dosage: 400 MG, QD
  12. FORTEO [Suspect]
     Dosage: 20 UG, QD
     Dates: end: 20110801
  13. CARVEDILOL [Concomitant]
     Dosage: 12.5 MG, BID
  14. CELEBREX [Concomitant]
     Dosage: 200 MG, QD
  15. SIMVASTATIN [Concomitant]
     Dosage: 40 MG, QD
  16. PRILOSEC [Concomitant]
     Dosage: 20 MG, TID

REACTIONS (2)
  - ATRIAL FIBRILLATION [None]
  - HEART RATE INCREASED [None]
